FAERS Safety Report 7042751-9 (Version None)
Quarter: 2010Q4

REPORT INFORMATION
  Report Type: 
  Country: None (occurrence: None)
  Receive Date: 20101013
  Receipt Date: 20091210
  Transmission Date: 20110411
  Serious: No
  Sender: FDA-Public Use
  Company Number: US-ASTRAZENECA-2009SE31181

PATIENT
  Age: 906 Month
  Sex: Male
  Weight: 77.1 kg

DRUGS (1)
  1. SYMBICORT [Suspect]
     Dosage: TOTAL DAILY DOSE 160 MCG
     Route: 055

REACTIONS (2)
  - BRONCHIAL SECRETION RETENTION [None]
  - UPPER RESPIRATORY TRACT INFECTION [None]
